FAERS Safety Report 9495308 (Version 5)
Quarter: 2014Q1

REPORT INFORMATION
  Report Type: Report from Study
  Country: AU (occurrence: AU)
  Receive Date: 20130903
  Receipt Date: 20140110
  Transmission Date: 20141002
  Serious: Yes (Hospitalization)
  Sender: FDA-Public Use
  Company Number: AU-PFIZER INC-2013247325

PATIENT
  Age: 68 Year
  Sex: Male
  Weight: 115 kg

DRUGS (13)
  1. TOFACITINIB CITRATE [Suspect]
     Indication: RHEUMATOID ARTHRITIS
     Dosage: 2 TABLETS, TWICE DAILY
     Route: 048
     Dates: start: 20110818
  2. DIAMICRON MR [Concomitant]
     Indication: DIABETES MELLITUS
     Dosage: 40 MG, 1X/DAY
     Route: 048
  3. CRESTOR [Concomitant]
     Indication: BLOOD CHOLESTEROL
     Dosage: 10 MG, 1X/DAY, NOCTE
     Route: 048
     Dates: start: 20101211
  4. DBL ASPIRIN [Concomitant]
     Indication: ANTICOAGULANT THERAPY
     Dosage: 100 MG, 1X/DAY
     Route: 048
     Dates: start: 20101211
  5. IRBESARTAN [Concomitant]
     Indication: HYPERTENSION
     Dosage: 300 MG, 1X/DAY
     Route: 048
     Dates: start: 2003
  6. ZOTON [Concomitant]
     Indication: GASTROOESOPHAGEAL REFLUX DISEASE
     Dosage: 30 MG, 1X/DAY, MANE
     Route: 048
     Dates: start: 200902
  7. SPIRIVA [Concomitant]
     Indication: OBSTRUCTIVE AIRWAYS DISORDER
     Dosage: 18 UG, 1X/DAY
     Route: 055
     Dates: start: 200806
  8. PANADOL OSTEO [Concomitant]
     Indication: OSTEOARTHRITIS
     Dosage: 1330 MG, THRICE DAILY
     Route: 048
  9. MEGAFOL [Concomitant]
     Indication: VITAMIN SUPPLEMENTATION
     Dosage: 10 MG, WEEKLY, MONDAYS
     Route: 048
     Dates: start: 200708
  10. MEGAFOL [Concomitant]
     Indication: VITAMIN SUPPLEMENTATION
  11. METHOBLASTIN [Concomitant]
     Indication: RHEUMATOID ARTHRITIS
     Dosage: 5 MG, WEEKLY, SUNDAYS
     Route: 048
     Dates: start: 20101122
  12. BYETTA [Concomitant]
     Indication: DIABETES MELLITUS
     Dosage: 10 UG, 2X/DAY
     Route: 058
     Dates: start: 20130331
  13. DURIDE [Concomitant]
     Indication: ANGINA PECTORIS
     Dosage: 40 MG, 1X/DAY
     Route: 048
     Dates: start: 20101216, end: 20130827

REACTIONS (1)
  - Angina unstable [Recovered/Resolved with Sequelae]
